FAERS Safety Report 23077222 (Version 1)
Quarter: 2023Q4

REPORT INFORMATION
  Report Type: Report from Study
  Country: US (occurrence: US)
  Receive Date: 20231018
  Receipt Date: 20231018
  Transmission Date: 20240109
  Serious: Yes (Death, Other)
  Sender: FDA-Public Use
  Company Number: US-AUROBINDO-AUR-APL-2023-063335

PATIENT
  Age: 44 Year
  Sex: Female

DRUGS (1)
  1. ACETAMINOPHEN [Suspect]
     Active Substance: ACETAMINOPHEN
     Indication: Back pain
     Dosage: 2.6 GRAM, (4 HRS)
     Route: 065

REACTIONS (6)
  - Gastric haemorrhage [Fatal]
  - Hypotension [Fatal]
  - Hepatic necrosis [Fatal]
  - Toxicity to various agents [Fatal]
  - Overdose [Unknown]
  - Intentional product misuse [Unknown]
